FAERS Safety Report 23014308 (Version 1)
Quarter: 2023Q4

REPORT INFORMATION
  Report Type: Spontaneous
  Country: KR (occurrence: KR)
  Receive Date: 20231002
  Receipt Date: 20231002
  Transmission Date: 20240109
  Serious: Yes (Hospitalization, Other)
  Sender: FDA-Public Use
  Company Number: KR-AMGEN-KORNI2023049420

PATIENT
  Age: 84 Year
  Sex: Female
  Weight: 46.4 kg

DRUGS (7)
  1. EVENITY [Suspect]
     Active Substance: ROMOSOZUMAB-AQQG
     Indication: Osteoporosis
     Dosage: 210 MILLIGRAM, QMO
     Route: 058
     Dates: start: 20220427
  2. DICAMAX [Concomitant]
     Dosage: 1 UNK, QD
     Route: 048
     Dates: start: 20220216
  3. CELEBREX [Concomitant]
     Active Substance: CELECOXIB
     Dosage: 100 UNK, BID
     Route: 048
     Dates: start: 20220216
  4. KABALIN [Concomitant]
     Dosage: 25-50 UNK, QD
     Route: 048
     Dates: start: 20220427
  5. ACETAMINOPHEN\TRAMADOL [Concomitant]
     Active Substance: ACETAMINOPHEN\TRAMADOL
     Dosage: 1 UNK. BID
     Route: 048
     Dates: start: 20220323
  6. SYNERJET [Concomitant]
     Dosage: 1 UNK, BID
     Route: 048
     Dates: start: 20220525
  7. Recomid [Concomitant]
     Dosage: 150 UNK, BID
     Route: 048
     Dates: start: 20220216

REACTIONS (2)
  - Pulmonary embolism [Recovered/Resolved]
  - Urinary tract infection [Recovering/Resolving]

NARRATIVE: CASE EVENT DATE: 20230228
